FAERS Safety Report 10368456 (Version 1)
Quarter: 2014Q1

REPORT INFORMATION
  Report Type: Spontaneous
  Country: US (occurrence: None)
  Receive Date: 20140306
  Receipt Date: 20140306
  Transmission Date: 20141002
  Serious: Yes (Other)
  Sender: FDA-Public Use
  Company Number: 163-21880-13022795

PATIENT
  Age: 73 Year
  Sex: Female
  Weight: 72.58 kg

DRUGS (10)
  1. REVLIMID (LENALIDOMIDE) (15 MILLIGRAM, CAPSULES) [Suspect]
     Indication: PLASMA CELL MYELOMA
     Dosage: 15MG MON-FRIDAY PO
     Route: 048
     Dates: start: 20110522
  2. ARIMIDEX (ANASTROZOLE) (TABLETS) [Concomitant]
  3. CALCIUM (UNKNOWN) [Concomitant]
  4. DEXAMETHASONE (UNKNOWN) [Concomitant]
  5. FOLIC ACID (TABLETS) [Concomitant]
  6. JANUVIA (SITAGLIPTIN PHOSPHATE) (TABLETS) [Concomitant]
  7. METHIMAZOLE (THIAMAZOLE) (UNKNOWN) [Concomitant]
  8. NORVASC (AMLODIPINE BESILATE) (TABLETS) [Concomitant]
  9. REQUIP (ROPINIROLE HYDROCHLORIDE) (TABLETS) [Concomitant]
  10. VICODIN (UNKNOWN) [Concomitant]

REACTIONS (3)
  - Thrombosis [None]
  - Laceration [None]
  - Herpes zoster [None]
